FAERS Safety Report 11205469 (Version 1)
Quarter: 2015Q2

REPORT INFORMATION
  Report Type: Report from Study
  Country: US (occurrence: US)
  Receive Date: 20150622
  Receipt Date: 20150622
  Transmission Date: 20150821
  Serious: Yes (Hospitalization)
  Sender: FDA-Public Use
  Company Number: US-BIOGENIDEC-2013BI011776

PATIENT
  Age: 56 Year
  Sex: Female

DRUGS (1)
  1. AVONEX [Suspect]
     Active Substance: INTERFERON BETA-1A
     Indication: MULTIPLE SCLEROSIS
     Route: 030
     Dates: start: 19980901

REACTIONS (3)
  - Pain in extremity [Not Recovered/Not Resolved]
  - Fluid retention [Not Recovered/Not Resolved]
  - Viral cardiomyopathy [Recovered/Resolved]

NARRATIVE: CASE EVENT DATE: 20121227
